FAERS Safety Report 7391850-0 (Version None)
Quarter: 2011Q2

REPORT INFORMATION
  Report Type: 
  Country: None (occurrence: None)
  Receive Date: 20110404
  Receipt Date: 20110330
  Transmission Date: 20111010
  Serious: Yes (Hospitalization)
  Sender: FDA-Public Use
  Company Number: DE-ROCHE-768266

PATIENT
  Sex: Male
  Weight: 75 kg

DRUGS (4)
  1. IRINOTECAN HCL [Suspect]
     Dosage: LAST ADMINISTRATION PRIOR TO EVENT WAS ON 28 AUG 2010
     Route: 042
     Dates: start: 20090404
  2. FLUOROURACIL [Suspect]
     Dosage: ADMINISTERED INTRAVENOUSLY PER 24 HOUR PUMP. LAST ADMINISTRATION PRIOR TO EVENT WAS ON 28 AUG 2010
     Route: 042
     Dates: start: 20090104
  3. CALCIUM FOLINATE [Suspect]
     Dosage: ADMINISTERED INTRAVENOUSLY PER 24 HOUR PUMP. LAST ADMINISTRATION PRIOR TO EVENT WAS ON 28 AUG 2010
     Route: 042
     Dates: start: 20090104
  4. BEVACIZUMAB [Suspect]
     Dosage: LAST ADMINISTRATION PRIOR TO EVENT WAS ON 28 AUG 2010
     Route: 042
     Dates: start: 20090404

REACTIONS (3)
  - ABDOMINAL PAIN [None]
  - DIARRHOEA [None]
  - DIZZINESS [None]
